FAERS Safety Report 5149457-1 (Version None)
Quarter: 2006Q4

REPORT INFORMATION
  Report Type: 
  Country: None (occurrence: None)
  Receive Date: 20061113
  Receipt Date: 20060120
  Transmission Date: 20070319
  Serious: No
  Sender: FDA-Public Use
  Company Number: 433894

PATIENT
  Age: 77 Year
  Sex: Female

DRUGS (9)
  1. COREG [Suspect]
     Dosage: 6.25MG TWICE PER DAY
     Route: 048
     Dates: start: 20040901
  2. COZAAR [Concomitant]
     Route: 065
  3. LEVOTHROID [Concomitant]
     Route: 065
  4. NORVASC [Concomitant]
     Route: 065
  5. POTASSIUM CHLORIDE [Concomitant]
     Route: 065
  6. TORSEMIDE [Concomitant]
     Route: 065
  7. WARFARIN SODIUM [Concomitant]
     Route: 065
  8. CALCIUM PLUS D [Concomitant]
     Route: 065
  9. MULTI-VITAMIN [Concomitant]
     Route: 065

REACTIONS (1)
  - INSOMNIA [None]
